FAERS Safety Report 19165641 (Version 2)
Quarter: 2021Q3

REPORT INFORMATION
  Report Type: Spontaneous
  Country: US (occurrence: US)
  Receive Date: 20210421
  Receipt Date: 20210722
  Transmission Date: 20211014
  Serious: Yes (Life-Threatening)
  Sender: FDA-Public Use
  Company Number: US-ZOGENIX INTERNATIONAL LIMITED, A WHOLLY OWNED SUBSIDIARY OF ZOGENIX, INC.-2021ZX000066

PATIENT
  Age: 23 Year
  Sex: Male
  Weight: 67.65 kg

DRUGS (6)
  1. FINTEPLA [Suspect]
     Active Substance: FENFLURAMINE
     Indication: SEVERE MYOCLONIC EPILEPSY OF INFANCY
     Route: 048
     Dates: start: 20201210, end: 20201216
  2. FINTEPLA [Suspect]
     Active Substance: FENFLURAMINE
     Indication: SEVERE MYOCLONIC EPILEPSY OF INFANCY
     Route: 048
     Dates: start: 20201111, end: 202101
  3. FINTEPLA [Suspect]
     Active Substance: FENFLURAMINE
     Route: 048
     Dates: start: 20201217, end: 20201224
  4. KEPPRA [Concomitant]
     Active Substance: LEVETIRACETAM
     Indication: SEVERE MYOCLONIC EPILEPSY OF INFANCY
     Route: 065
     Dates: start: 202003
  5. FINTEPLA [Suspect]
     Active Substance: FENFLURAMINE
     Route: 048
     Dates: start: 20201225, end: 20210104
  6. FINTEPLA [Suspect]
     Active Substance: FENFLURAMINE
     Route: 048
     Dates: start: 20210105, end: 20210122

REACTIONS (4)
  - Drug ineffective [Unknown]
  - Seizure [Recovered/Resolved]
  - Aphasia [Recovered/Resolved]
  - Tremor [Recovered/Resolved]

NARRATIVE: CASE EVENT DATE: 20201212
